FAERS Safety Report 6409345-7 (Version None)
Quarter: 2009Q4

REPORT INFORMATION
  Report Type: 
  Country: None (occurrence: None)
  Receive Date: 20091019
  Receipt Date: 20091019
  Transmission Date: 20100525
  Serious: No
  Sender: FDA-Public Use
  Company Number: None

PATIENT
  Age: 30 Year
  Sex: Female
  Weight: 86.1834 kg

DRUGS (3)
  1. CREST PRO-HEALTH NIGHT RINSE CETYLPYRIDINIUM CHLORIDE 0.07% CREST, PRO [Suspect]
     Indication: DENTAL PLAQUE
     Dosage: 20ML 1-2X/DAY PO
     Route: 048
     Dates: start: 20090901, end: 20090919
  2. CREST PRO-HEALTH NIGHT RINSE CETYLPYRIDINIUM CHLORIDE 0.07% CREST, PRO [Suspect]
     Indication: GINGIVITIS
     Dosage: 20ML 1-2X/DAY PO
     Route: 048
     Dates: start: 20090901, end: 20090919
  3. CREST PRO-HEALTH NIGHT RINSE CETYLPYRIDINIUM CHLORIDE 0.07% CREST, PRO [Suspect]
     Indication: PROPHYLAXIS
     Dosage: 20ML 1-2X/DAY PO
     Route: 048
     Dates: start: 20090901, end: 20090919

REACTIONS (2)
  - FRUSTRATION [None]
  - TOOTH DISCOLOURATION [None]
